APPROVED DRUG PRODUCT: PHENDIMETRAZINE TARTRATE
Active Ingredient: PHENDIMETRAZINE TARTRATE
Strength: 35MG
Dosage Form/Route: TABLET;ORAL
Application: A040762 | Product #001 | TE Code: AA
Applicant: ELITE LABORATORIES INC
Approved: Jan 28, 2008 | RLD: No | RS: No | Type: RX